FAERS Safety Report 9785801 (Version 1)
Quarter: 2013Q4

REPORT INFORMATION
  Report Type: Spontaneous
  Country: FR (occurrence: None)
  Receive Date: 20131223
  Receipt Date: 20131223
  Transmission Date: 20140711
  Serious: Yes (Hospitalization)
  Sender: FDA-Public Use
  Company Number: SYM-2013-14021

PATIENT
  Age: 61 Year
  Sex: Female

DRUGS (3)
  1. FLECAINE [Suspect]
     Indication: PRODUCT USED FOR UNKNOWN INDICATION
  2. MONO-TILDIEM [Suspect]
     Indication: PRODUCT USED FOR UNKNOWN INDICATION
     Dates: start: 20130918, end: 201310
  3. KARDEGIC [Suspect]
     Indication: PRODUCT USED FOR UNKNOWN INDICATION
     Route: 048
     Dates: start: 20130928, end: 201310

REACTIONS (2)
  - Acute generalised exanthematous pustulosis [None]
  - Skin lesion [None]
